FAERS Safety Report 4961752-5 (Version None)
Quarter: 2006Q2

REPORT INFORMATION
  Report Type: 
  Country: None (occurrence: None)
  Receive Date: 20060404
  Receipt Date: 20060328
  Transmission Date: 20061013
  Serious: Yes (Hospitalization)
  Sender: FDA-Public Use
  Company Number: PHMT2006CA00967

PATIENT
  Sex: Male

DRUGS (1)
  1. ZOMETA [Suspect]
     Indication: METASTASES TO BONE
     Dosage: 4MG/4WEEKS
     Route: 042
     Dates: start: 20060320

REACTIONS (5)
  - ARTHRALGIA [None]
  - ERYTHEMA [None]
  - GOUT [None]
  - JOINT SWELLING [None]
  - PAIN [None]
